FAERS Safety Report 6295707-8 (Version None)
Quarter: 2009Q3

REPORT INFORMATION
  Report Type: 
  Country: None (occurrence: None)
  Receive Date: 20090731
  Receipt Date: 20090728
  Transmission Date: 20100115
  Serious: Yes (Life-Threatening, Hospitalization)
  Sender: FDA-Public Use
  Company Number: F03200800074

PATIENT
  Age: 78 Year
  Sex: Male
  Weight: 60.8 kg

DRUGS (9)
  1. OXALIPLATIN [Suspect]
     Indication: COLORECTAL CANCER METASTATIC
     Dosage: 137 MG (85 MG/M2) EVERY 2 WEEKS - INTRAVENOUS NOS
     Route: 042
     Dates: start: 20080317, end: 20080317
  2. FLUOROURACIL [Suspect]
     Indication: COLORECTAL CANCER METASTATIC
     Dosage: 648 MG (400 MG/M2) PUSH AND 3888 MG (2400 MG/M2) INFUSION EVERY 2 WEEKS - INTRAVENOUS NOS
     Route: 042
     Dates: start: 20080311, end: 20080311
  3. LEUCOVORIN CALCIUM [Suspect]
     Indication: COLORECTAL CANCER METASTATIC
     Dosage: 648 MG Q2W - INTRAVENOUS NOS
     Route: 042
     Dates: start: 20080317, end: 20080317
  4. AVASTIN [Suspect]
     Indication: COLORECTAL CANCER METASTATIC
     Dosage: 268 MG (5 MG/KG) EVERY 2 WEEKS - INTRAVENOUS NOS
     Route: 042
     Dates: start: 20080317, end: 20080317
  5. ONDANSETRON HYDROCHLORIDE [Concomitant]
  6. OMEPRAZOLE [Concomitant]
  7. ALUMINIUM HYDROXIDE GEL, DRIED [Concomitant]
  8. FUROSEMIDE [Concomitant]
  9. DOCUSATE + CASANTHROL [Concomitant]

REACTIONS (9)
  - ANAEMIA [None]
  - ASCITES [None]
  - COLON CANCER METASTATIC [None]
  - DECREASED APPETITE [None]
  - DEEP VEIN THROMBOSIS [None]
  - GASTROINTESTINAL HAEMORRHAGE [None]
  - MALIGNANT NEOPLASM PROGRESSION [None]
  - OESOPHAGITIS [None]
  - SHOCK HAEMORRHAGIC [None]
